FAERS Safety Report 24358300 (Version 1)
Quarter: 2024Q3

REPORT INFORMATION
  Report Type: Spontaneous
  Country: CO (occurrence: CO)
  Receive Date: 20240924
  Receipt Date: 20240924
  Transmission Date: 20241016
  Serious: Yes (Hospitalization)
  Sender: TAKEDA
  Company Number: CO-TAKEDA-2024TUS093904

PATIENT
  Age: 44 Year
  Sex: Male
  Weight: 65 kg

DRUGS (1)
  1. ICLUSIG [Suspect]
     Active Substance: PONATINIB\PONATINIB HYDROCHLORIDE
     Indication: Chronic myeloid leukaemia
     Dosage: 45 MILLIGRAM, QD
     Route: 048
     Dates: start: 20220410, end: 20240915

REACTIONS (5)
  - Eye infection [Unknown]
  - Headache [Unknown]
  - Eye oedema [Unknown]
  - Road traffic accident [Unknown]
  - Eye pain [Unknown]

NARRATIVE: CASE EVENT DATE: 20240914
